FAERS Safety Report 8340878-2 (Version None)
Quarter: 2012Q1

REPORT INFORMATION
  Report Type: 
  Country: None (occurrence: None)
  Receive Date: 20120330
  Receipt Date: 20110729
  Transmission Date: 20120608
  Serious: Yes (Hospitalization)
  Sender: FDA-Public Use
  Company Number: INDT-PR-1106S-0001

PATIENT
  Age: 73 Year
  Sex: Female

DRUGS (1)
  1. INDIUM- 111 DTPA INJ [Suspect]
     Indication: NORMAL PRESSURE HYDROCEPHALUS
     Dosage: 18.5 MBQ, SINGLE DOSE, INTRATHECAL
     Route: 037
     Dates: start: 20110614, end: 20110614

REACTIONS (3)
  - MENINGITIS STREPTOCOCCAL [None]
  - UNRESPONSIVE TO STIMULI [None]
  - LOSS OF CONSCIOUSNESS [None]
